FAERS Safety Report 9262504 (Version 1)
Quarter: 2013Q2

REPORT INFORMATION
  Report Type: Spontaneous
  Country: US (occurrence: None)
  Receive Date: 20130426
  Receipt Date: 20130426
  Transmission Date: 20140414
  Serious: No
  Sender: FDA-Public Use
  Company Number: None

PATIENT
  Age: 58 Year
  Sex: Female
  Weight: 87.54 kg

DRUGS (1)
  1. FENTANYL [Suspect]

REACTIONS (3)
  - Product adhesion issue [None]
  - Drug effect decreased [None]
  - Product substitution issue [None]
